FAERS Safety Report 21706578 (Version 1)
Quarter: 2022Q4

REPORT INFORMATION
  Report Type: Spontaneous
  Country: US (occurrence: None)
  Receive Date: 20221208
  Receipt Date: 20221208
  Transmission Date: 20230113
  Serious: Yes (Death, Hospitalization)
  Sender: FDA-Public Use
  Company Number: None

PATIENT
  Age: 73 Year
  Sex: Male
  Weight: 72 kg

DRUGS (1)
  1. ORGOVYX [Suspect]
     Active Substance: RELUGOLIX
     Indication: Prostate cancer
     Dates: start: 20221027, end: 20221116

REACTIONS (5)
  - Pneumonia [None]
  - Atrial fibrillation [None]
  - Oxygen saturation decreased [None]
  - Cardiac arrest [None]
  - Drug ineffective [None]

NARRATIVE: CASE EVENT DATE: 20221115
